FAERS Safety Report 6132268-8 (Version None)
Quarter: 2009Q1

REPORT INFORMATION
  Report Type: 
  Country: None (occurrence: None)
  Receive Date: 20090325
  Receipt Date: 20090310
  Transmission Date: 20090719
  Serious: Yes (Death)
  Sender: FDA-Public Use
  Company Number: BG-GENENTECH-221435

PATIENT
  Age: 25 Year
  Sex: Male

DRUGS (3)
  1. BEVACIZUMAB [Suspect]
     Indication: COLON CANCER
     Dosage: 780 MG, Q3W
     Route: 042
     Dates: start: 20060111
  2. CAPECITABINE [Suspect]
     Indication: COLON CANCER
     Dosage: 2300 MG, BID
     Route: 048
     Dates: start: 20060111
  3. OXALIPLATIN [Suspect]
     Indication: COLON CANCER
     Dosage: 280 MG, Q3W
     Route: 042
     Dates: start: 20060111

REACTIONS (1)
  - SUDDEN DEATH [None]
